FAERS Safety Report 5551514-2 (Version None)
Quarter: 2007Q4

REPORT INFORMATION
  Report Type: 
  Country: None (occurrence: None)
  Receive Date: 20071129
  Receipt Date: 20070412
  Transmission Date: 20080405
  Serious: Yes (Other)
  Sender: FDA-Public Use
  Company Number: US200702003316

PATIENT
  Age: 30 Year
  Sex: Male

DRUGS (4)
  1. ZYPREXA [Suspect]
     Indication: DEPRESSION
     Dosage: 10 MG
     Dates: start: 20020101, end: 20030101
  2. ZOLOFT [Concomitant]
  3. TEGRETOL [Concomitant]
  4. DEPAKOTE [Concomitant]

REACTIONS (9)
  - ASTHENIA [None]
  - BALANCE DISORDER [None]
  - BLOOD PRESSURE INCREASED [None]
  - DIZZINESS [None]
  - HUNGER [None]
  - HYPERGLYCAEMIA [None]
  - INCREASED APPETITE [None]
  - SYNCOPE [None]
  - WEIGHT INCREASED [None]
